FAERS Safety Report 7461049-8 (Version None)
Quarter: 2011Q2

REPORT INFORMATION
  Report Type: 
  Country: None (occurrence: None)
  Receive Date: 20110505
  Receipt Date: 20110426
  Transmission Date: 20111010
  Serious: Yes (Other)
  Sender: FDA-Public Use
  Company Number: CA-GENENTECH-317800

PATIENT
  Sex: Male
  Weight: 110.7 kg

DRUGS (10)
  1. ACETAMINOPHEN [Concomitant]
     Indication: PREMEDICATION
     Dosage: 650 MG, UNK
     Route: 048
     Dates: start: 20100924, end: 20100924
  2. FENTANYL [Suspect]
     Indication: PAIN
     Dosage: UNK
     Route: 065
     Dates: end: 20100828
  3. METHYLPREDNISOLONE [Concomitant]
     Indication: PREMEDICATION
     Dosage: 100 MG, UNK
     Route: 042
     Dates: start: 20100924, end: 20100924
  4. DIPHENHYDRAMINE HYDROCHLORIDE [Concomitant]
     Indication: PREMEDICATION
     Dosage: 50 MG, UNK
     Route: 048
     Dates: start: 20100924, end: 20100924
  5. RITUXIMAB [Suspect]
     Indication: RHEUMATOID ARTHRITIS
     Dosage: 1000 MG, DAYS 1+15
     Route: 042
     Dates: start: 20100819, end: 20100924
  6. LORAZEPAM [Concomitant]
     Indication: ANXIETY
     Dosage: UNK
  7. ZOPICLONE [Concomitant]
     Indication: INSOMNIA
     Dosage: UNK
  8. SYNTHROID [Concomitant]
     Indication: THYROID DISORDER
     Dosage: UNK
  9. OXYCONTIN [Concomitant]
     Indication: PAIN
     Dosage: UNK
  10. EFFEXOR [Concomitant]
     Indication: DEPRESSION
     Dosage: UNK

REACTIONS (3)
  - VOMITING [None]
  - OVERDOSE [None]
  - RECTAL HAEMORRHAGE [None]
